FAERS Safety Report 9208070 (Version 5)
Quarter: 2014Q1

REPORT INFORMATION
  Report Type: Spontaneous
  Country: US (occurrence: US)
  Receive Date: 20130403
  Receipt Date: 20140328
  Transmission Date: 20141002
  Serious: Yes (Life-Threatening, Hospitalization)
  Sender: FDA-Public Use
  Company Number: US-B.I. PHARMACEUTICALS,INC./RIDGEFIELD-2013-BI-08819BP

PATIENT
  Age: 82 Year
  Sex: Male
  Weight: 74.84 kg

DRUGS (14)
  1. PRADAXA [Suspect]
     Indication: ANTICOAGULANT THERAPY
     Dosage: 300 MG
     Route: 048
     Dates: start: 20110123, end: 20110329
  2. PRADAXA [Suspect]
     Indication: ATRIAL FIBRILLATION
     Dosage: 300 MG
     Route: 048
     Dates: end: 20110713
  3. BABY ASPIRIN [Concomitant]
     Dosage: 81 MG
     Route: 048
  4. SKELAXIN [Concomitant]
     Dosage: 800 MG
     Route: 048
  5. QUESTRAN [Concomitant]
     Route: 065
  6. LORTAB [Concomitant]
     Route: 048
  7. CRESTOR [Concomitant]
     Indication: HYPERLIPIDAEMIA
     Dosage: 10 MG
     Route: 048
  8. DIOVAN [Concomitant]
     Dosage: 160 MG
     Route: 048
  9. MULTAQ [Concomitant]
     Dosage: 400 MG
     Route: 065
  10. BIOFREEZE [Concomitant]
     Route: 065
  11. FOSAMAX [Concomitant]
     Route: 065
  12. CHOLESTYRAMINE [Concomitant]
     Route: 065
  13. MS CONTIN [Concomitant]
     Dosage: 30 MG
     Route: 065
  14. PLAVIX [Concomitant]
     Route: 065

REACTIONS (4)
  - Gastrointestinal haemorrhage [Recovered/Resolved]
  - Gastrointestinal haemorrhage [Unknown]
  - Anaemia [Recovered/Resolved]
  - Contusion [Unknown]
